FAERS Safety Report 4356686-3 (Version None)
Quarter: 2004Q2

REPORT INFORMATION
  Report Type: 
  Country: None (occurrence: None)
  Receive Date: 20040511
  Receipt Date: 20040511
  Transmission Date: 20050107
  Serious: Yes (Hospitalization)
  Sender: FDA-Public Use
  Company Number: None

PATIENT
  Age: 72 Year
  Sex: Female
  Weight: 79 kg

DRUGS (9)
  1. IRINOTECAN [Suspect]
     Indication: OESOPHAGEAL ADENOCARCINOMA
     Dosage: 123 MG, 042
     Dates: start: 20040330, end: 20040406
  2. CISPLATIN [Suspect]
     Indication: OESOPHAGEAL ADENOCARCINOMA
     Dosage: 57 MG 042
     Dates: start: 20040330, end: 20040406
  3. DIFLUCAN [Concomitant]
  4. LEVAQUIN [Concomitant]
  5. COUMADIN [Concomitant]
  6. HYDROCHLOROTHIAZIDE [Concomitant]
  7. ENALAPRIL MALEATE [Concomitant]
  8. ZYRTEC [Concomitant]
  9. TOPROL-XL [Concomitant]

REACTIONS (7)
  - BLOOD PRESSURE DECREASED [None]
  - BODY TEMPERATURE INCREASED [None]
  - CONFUSIONAL STATE [None]
  - DIARRHOEA [None]
  - FAECES DISCOLOURED [None]
  - INTERNATIONAL NORMALISED RATIO INCREASED [None]
  - LOOSE STOOLS [None]
